FAERS Safety Report 6479510-1 (Version None)
Quarter: 2009Q4

REPORT INFORMATION
  Report Type: 
  Country: None (occurrence: None)
  Receive Date: 20091207
  Receipt Date: 20091207
  Transmission Date: 20100525
  Serious: No
  Sender: FDA-Public Use
  Company Number: None

PATIENT
  Age: 83 Year
  Sex: Female
  Weight: 62.1428 kg

DRUGS (2)
  1. SYNTHROID [Suspect]
     Dosage: 1 TABLET 1 PER DAY PO
     Route: 048
     Dates: start: 20090505, end: 20090707
  2. SYNTHROID [Suspect]
     Dosage: 1 TABLET 1 PER DAY PO
     Route: 048
     Dates: start: 20090708, end: 20090819

REACTIONS (3)
  - BLOOD PRESSURE INCREASED [None]
  - PRODUCT SUBSTITUTION ISSUE [None]
  - WEIGHT INCREASED [None]
